FAERS Safety Report 6997993-5 (Version None)
Quarter: 2010Q3

REPORT INFORMATION
  Report Type: 
  Country: None (occurrence: None)
  Receive Date: 20100920
  Receipt Date: 20071120
  Transmission Date: 20110219
  Serious: Yes (Other)
  Sender: FDA-Public Use
  Company Number: US-ASTRAZENECA-2007UW06361

PATIENT
  Age: 527 Month
  Sex: Female
  Weight: 95.3 kg

DRUGS (10)
  1. SEROQUEL [Suspect]
     Indication: SCHIZOAFFECTIVE DISORDER
     Dosage: 50 MG - 900 MG
     Route: 048
     Dates: start: 20001101
  2. SEROQUEL [Suspect]
     Dosage: 25-900 MG
     Route: 048
     Dates: start: 20010105
  3. RISPERDAL [Suspect]
     Dates: start: 20000901
  4. REMERON [Concomitant]
     Dosage: 15-30 MG
     Dates: start: 20000914
  5. CLONAZEPAM [Concomitant]
     Dosage: 0.5-1 MG
     Route: 048
     Dates: start: 20010105
  6. ADALAT CC [Concomitant]
     Dates: start: 20010117
  7. CIMETIDINE [Concomitant]
     Dates: start: 20010117
  8. LEXAPRO [Concomitant]
     Dosage: 10-20 MG
     Dates: start: 20050424
  9. WELLBUTRIN XL [Concomitant]
     Dates: start: 20050424
  10. TRILEPTAL [Concomitant]
     Dosage: 300-450 MG
     Dates: start: 20050424

REACTIONS (3)
  - DIABETES MELLITUS [None]
  - PANCREATITIS [None]
  - WEIGHT INCREASED [None]
